APPROVED DRUG PRODUCT: CORTEF ACETATE
Active Ingredient: HYDROCORTISONE ACETATE
Strength: 2.5% **Federal Register determination that product was not discontinued or withdrawn for safety or effectiveness reasons**
Dosage Form/Route: OINTMENT;TOPICAL
Application: N008917 | Product #001
Applicant: PHARMACIA AND UPJOHN CO
Approved: Approved Prior to Jan 1, 1982 | RLD: Yes | RS: No | Type: DISCN